FAERS Safety Report 10556874 (Version 1)
Quarter: 2014Q4

REPORT INFORMATION
  Report Type: Spontaneous
  Country: JP (occurrence: JP)
  Receive Date: 20141031
  Receipt Date: 20141031
  Transmission Date: 20150529
  Serious: Yes (Other)
  Sender: FDA-Public Use
  Company Number: JP-VERTEX PHARMACEUTICALS-2014-004422

PATIENT
  Age: 60 Year
  Sex: Female

DRUGS (3)
  1. TELAVIC [Suspect]
     Active Substance: TELAPREVIR
     Indication: CHRONIC HEPATITIS C
     Dosage: UNK MG, UNK
     Route: 048
     Dates: start: 20121016
  2. RIBAVIRIN. [Suspect]
     Active Substance: RIBAVIRIN
     Indication: CHRONIC HEPATITIS C
     Route: 048
  3. PEGINTERFERON ALFA-2B [Suspect]
     Active Substance: PEGINTERFERON ALFA-2B
     Indication: CHRONIC HEPATITIS C
     Route: 058

REACTIONS (5)
  - Rash [Unknown]
  - Nausea [Unknown]
  - Pruritus [Unknown]
  - Decreased appetite [Unknown]
  - Blood uric acid increased [Unknown]
